FAERS Safety Report 13816023 (Version 2)
Quarter: 2017Q3

REPORT INFORMATION
  Report Type: Spontaneous
  Country: US (occurrence: US)
  Receive Date: 20170731
  Receipt Date: 20170731
  Transmission Date: 20171127
  Serious: Yes (Hospitalization, Other)
  Sender: FDA-Public Use
  Company Number: US-SA-2017SA090476

PATIENT
  Age: 17 Year
  Sex: Female

DRUGS (4)
  1. AMBIEN [Suspect]
     Active Substance: ZOLPIDEM TARTRATE
     Indication: SUICIDE ATTEMPT
     Route: 048
     Dates: start: 20170423, end: 20170423
  2. BABY ASPIRIN [Suspect]
     Active Substance: ASPIRIN
     Indication: SUICIDE ATTEMPT
     Route: 048
     Dates: start: 20170423, end: 20170423
  3. VITAMIN D [Suspect]
     Active Substance: CHOLECALCIFEROL
     Indication: SUICIDE ATTEMPT
     Route: 048
     Dates: start: 20170423, end: 20170423
  4. EPCLUSA [Suspect]
     Active Substance: SOFOSBUVIR\VELPATASVIR
     Indication: SUICIDE ATTEMPT
     Route: 048
     Dates: start: 20170423, end: 20170423

REACTIONS (3)
  - Suicide attempt [Recovered/Resolved]
  - Prescription drug used without a prescription [Unknown]
  - Intentional overdose [Unknown]

NARRATIVE: CASE EVENT DATE: 20170423
